FAERS Safety Report 22659665 (Version 1)
Quarter: 2023Q2

REPORT INFORMATION
  Report Type: Spontaneous
  Country: US (occurrence: None)
  Receive Date: 20230630
  Receipt Date: 20230630
  Transmission Date: 20230721
  Serious: Yes (Other)
  Sender: FDA-Public Use
  Company Number: None

PATIENT
  Age: 57 Year
  Sex: Female

DRUGS (5)
  1. REPATHA [Suspect]
     Active Substance: EVOLOCUMAB
     Dosage: OTHER FREQUENCY : Q 2WKS;?
     Route: 058
     Dates: start: 20230607
  2. LEVOTHYROXINE [Concomitant]
     Active Substance: LEVOTHYROXINE
  3. ONDANSETRON [Concomitant]
     Active Substance: ONDANSETRON
  4. RIZATRIPTAN [Concomitant]
     Active Substance: RIZATRIPTAN
  5. FLUTICASONE [Concomitant]
     Active Substance: FLUTICASONE

REACTIONS (6)
  - Headache [None]
  - Rhinorrhoea [None]
  - Cough [None]
  - Urinary tract infection [None]
  - Back pain [None]
  - Nausea [None]

NARRATIVE: CASE EVENT DATE: 20230607
